FAERS Safety Report 22170214 (Version 10)
Quarter: 2025Q4

REPORT INFORMATION
  Report Type: Spontaneous
  Country: EU (occurrence: EU)
  Receive Date: 20230404
  Receipt Date: 20251219
  Transmission Date: 20260118
  Serious: Yes (Hospitalization)
  Sender: AMGEN
  Company Number: None

PATIENT
  Age: 55 Year
  Sex: Male

DRUGS (29)
  1. ARANESP [Suspect]
     Active Substance: DARBEPOETIN ALFA
     Indication: Anaemia
     Dosage: 01 DOSAGE FORM, QWK (1 DOSAGE FORM, QW (300 MICROGRAM PER GRAM))
     Route: 058
     Dates: start: 20230213
  2. RITUXIMAB [Suspect]
     Active Substance: RITUXIMAB
     Indication: Diffuse large B-cell lymphoma
     Dosage: 1 COURSE
     Route: 065
     Dates: start: 20221227
  3. NALOXEGOL OXALATE [Suspect]
     Active Substance: NALOXEGOL OXALATE
     Indication: Constipation
     Dosage: 25 MILLIGRAM, PRN (IF NECESSARY)
     Route: 048
     Dates: start: 20230211
  4. ACUPAN [Suspect]
     Active Substance: NEFOPAM HYDROCHLORIDE
     Indication: Pain
     Dosage: 1 DOSAGE FORM, Q4H (ONE AMPOULE EVERY FOUR HOURS IF PAIN)
     Route: 048
     Dates: start: 20230106, end: 20230302
  5. CILASTATIN SODIUM\IMIPENEM [Suspect]
     Active Substance: CILASTATIN SODIUM\IMIPENEM
     Indication: Bacterial infection
     Dosage: 800 MILLIGRAM, QD, 500MG/500MG
     Route: 040
     Dates: start: 20230114, end: 20230208
  6. ACETAMINOPHEN [Suspect]
     Active Substance: ACETAMINOPHEN
     Indication: Pain
     Dosage: 1 DOSAGE FORM, Q6H  (1 TABLET Q6H, MAXIMUM 3 TABLETS/D)
     Route: 048
     Dates: start: 20230211
  7. ACETAMINOPHEN [Suspect]
     Active Substance: ACETAMINOPHEN
     Dosage: 4 DOSAGE FORM, QD (1 DOSAGE FORM, Q6H (TABLET) (1 TABLET Q6H, MAXIMUM 3 TABLETS/D))
     Route: 048
  8. DAPTOMYCIN [Suspect]
     Active Substance: DAPTOMYCIN
     Indication: Bacterial infection
     Dosage: 1 GRAM, QD
     Route: 040
     Dates: start: 20230211, end: 20230306
  9. CIPROFLOXACIN [Suspect]
     Active Substance: CIPROFLOXACIN
     Indication: Bacterial infection
     Dosage: UNK
     Route: 065
     Dates: start: 20230203, end: 20230208
  10. CIPROFLOXACIN [Suspect]
     Active Substance: CIPROFLOXACIN
     Indication: Diffuse large B-cell lymphoma
  11. LOVENOX [Suspect]
     Active Substance: ENOXAPARIN SODIUM
     Indication: Prophylaxis
     Dosage: 4000 INTERNATIONAL UNIT
     Route: 058
     Dates: start: 20230210
  12. LOVENOX [Suspect]
     Active Substance: ENOXAPARIN SODIUM
     Indication: Constipation
  13. VINCRISTINE SULFATE [Suspect]
     Active Substance: VINCRISTINE SULFATE
     Indication: Diffuse large B-cell lymphoma
     Dosage: (1 CURE, 1 COURSE)
     Route: 065
     Dates: start: 20221227
  14. CYCLOPHOSPHAMIDE [Suspect]
     Active Substance: CYCLOPHOSPHAMIDE
     Indication: Diffuse large B-cell lymphoma
     Dosage: 1  COURSE
     Route: 065
     Dates: start: 20221227
  15. ALPRAZOLAM [Suspect]
     Active Substance: ALPRAZOLAM
     Indication: Anxiety
     Dosage: 0.25 MILLIGRAM (0.25 MG (1TAB 0.25 MG IF ANGUISH) (1 DF)
     Route: 048
     Dates: start: 20230106, end: 20230209
  16. LEUCOVORIN CALCIUM [Suspect]
     Active Substance: LEUCOVORIN CALCIUM
     Indication: Prophylaxis
     Dosage: 2 DOSAGE FORM, QWK (2 DOSAGE FORM (2 DF, 0.5 WEEK (A TAB EVERY MONDAY AND THURSDAY))
     Route: 048
     Dates: start: 20230102
  17. LEUCOVORIN CALCIUM [Suspect]
     Active Substance: LEUCOVORIN CALCIUM
     Indication: Bacterial infection
  18. PANTOPRAZOLE [Suspect]
     Active Substance: PANTOPRAZOLE
     Indication: Constipation
     Dosage: 20 MILLIGRAM
     Route: 048
     Dates: start: 20230106
  19. PANTOPRAZOLE [Suspect]
     Active Substance: PANTOPRAZOLE
     Indication: Gastritis prophylaxis
  20. VALACYCLOVIR HYDROCHLORIDE [Suspect]
     Active Substance: VALACYCLOVIR HYDROCHLORIDE
     Indication: Bacterial infection
     Dosage: 1,000 MG, QD, 500 MG MORNING AND EVENING500 MG, BID
     Route: 048
     Dates: start: 20230106
  21. DOXORUBICIN HYDROCHLORIDE [Suspect]
     Active Substance: DOXORUBICIN HYDROCHLORIDE
     Indication: Diffuse large B-cell lymphoma
     Dosage: 1 COURSE
     Route: 065
     Dates: start: 20221227
  22. CASPOFUNGIN ACETATE [Suspect]
     Active Substance: CASPOFUNGIN ACETATE
     Indication: Fungal infection
     Dosage: 70 MILLIGRAM
     Route: 040
     Dates: start: 20230126
  23. MORPHINE SULFATE [Suspect]
     Active Substance: MORPHINE SULFATE
     Indication: Pain
     Dosage: 01 DOSAGE FORM, Q12H (1 DF, Q12H, 1 TABLET SKENAN LP 30MG, EVERY 12 HOURS)
     Route: 048
     Dates: start: 20230210, end: 20230218
  24. AMITRIPTYLINE HYDROCHLORIDE [Suspect]
     Active Substance: AMITRIPTYLINE HYDROCHLORIDE
     Indication: Pain
     Dosage: 35 DRP, QD, 1/12 MILLILITRE PER DAY35 GTT DROPS, 5 DROP MOR, 10 DROP MIDDAY AND EVEN
     Route: 048
     Dates: start: 20221210
  25. CEFTRIAXONE [Suspect]
     Active Substance: CEFTRIAXONE
     Indication: Bacterial infection
     Dosage: 2 GRAM, QD (2 GRAM,QD1G MORNING AND EVENING)
     Route: 048
     Dates: start: 20230209
  26. BACTRIM [Suspect]
     Active Substance: SULFAMETHOXAZOLE\TRIMETHOPRIM
     Indication: Bacterial infection
     Dosage: 400 MILLIGRAM, QD (1 DF, 1 TAB IN THE MORNING)
     Route: 048
     Dates: start: 20230106, end: 20230303
  27. METRONIDAZOLE [Suspect]
     Active Substance: METRONIDAZOLE
     Indication: Bacterial infection
     Dosage: 1500 MILLIGRAM, QD (500 MG, QD (500 MG MORNING, NOON AND EVENIN))
     Route: 048
     Dates: start: 20230209, end: 20230303
  28. SKENAN [Suspect]
     Active Substance: MORPHINE SULFATE
     Indication: Pain
     Dosage: 30 MILLIGRAM, BID ((1 TAB SKENAN LP30MG EVERY 12 HOURS)
     Route: 048
  29. SKENAN [Suspect]
     Active Substance: MORPHINE SULFATE
     Dosage: 240 MILLIGRAM, QD/ 120 MILLIGRAM (30 MG, BID (1 SKENAN LP 30MG TABLET EVERY 12 HOURS))
     Route: 048
     Dates: start: 20230210, end: 20230218

REACTIONS (1)
  - Agranulocytosis [Recovered/Resolved]

NARRATIVE: CASE EVENT DATE: 20230201
